FAERS Safety Report 6053919-2 (Version None)
Quarter: 2009Q1

REPORT INFORMATION
  Report Type: 
  Country: None (occurrence: None)
  Receive Date: 20090127
  Receipt Date: 20090120
  Transmission Date: 20090719
  Serious: Yes (Hospitalization)
  Sender: FDA-Public Use
  Company Number: FR-ASTRAZENECA-2008CG01691

PATIENT
  Age: 6053 Day
  Sex: Male

DRUGS (2)
  1. OMEPRAZOLE [Suspect]
     Indication: PAROTITIS
     Route: 048
     Dates: start: 20081013, end: 20081018
  2. BI-PROFENID [Concomitant]
     Route: 048
     Dates: start: 20081013, end: 20081018

REACTIONS (2)
  - CONVULSION [None]
  - HYPONATRAEMIA [None]
